FAERS Safety Report 5956554-7 (Version None)
Quarter: 2008Q4

REPORT INFORMATION
  Report Type: 
  Country: None (occurrence: None)
  Receive Date: 20081114
  Receipt Date: 20081114
  Transmission Date: 20090506
  Serious: No
  Sender: FDA-Public Use
  Company Number: None

PATIENT
  Age: 48 Year
  Sex: Male
  Weight: 74.8435 kg

DRUGS (1)
  1. PREDNIZONE -PREDNISONE- [Suspect]
     Indication: DYSACUSIS
     Dosage: PO
     Route: 048

REACTIONS (2)
  - CHORIORETINOPATHY [None]
  - CONDITION AGGRAVATED [None]
